FAERS Safety Report 19256103 (Version 2)
Quarter: 2021Q2

REPORT INFORMATION
  Report Type: Spontaneous
  Country: CA (occurrence: CA)
  Receive Date: 20210514
  Receipt Date: 20210607
  Transmission Date: 20210717
  Serious: Yes (Other)
  Sender: FDA-Public Use
  Company Number: CA-CELLTRION INC.-2021CA006325

PATIENT

DRUGS (3)
  1. INFLECTRA [Suspect]
     Active Substance: INFLIXIMAB-DYYB
     Dosage: 600 MG,INDUCTION: 0,2 AND 6 WEEKSMAINTENANCE: Q 8 WEEKS
     Route: 042
     Dates: start: 20210504
  2. INFLECTRA [Suspect]
     Active Substance: INFLIXIMAB-DYYB
     Dosage: 600 MG,INDUCTION: 0,2 AND 6 WEEKSMAINTENANCE: Q 8 WEEKS
     Route: 042
     Dates: start: 20210525
  3. INFLECTRA [Suspect]
     Active Substance: INFLIXIMAB-DYYB
     Indication: CROHN^S DISEASE
     Dosage: 600 MG INDUCTION: 0,2 AND 6 WEEKSMAINTENANCE: Q 8 WEEKS
     Route: 042
     Dates: start: 20210414, end: 20210414

REACTIONS (5)
  - Anal fissure [Unknown]
  - COVID-19 [Recovered/Resolved]
  - Condition aggravated [Recovering/Resolving]
  - Inappropriate schedule of product administration [Unknown]
  - Arthralgia [Unknown]

NARRATIVE: CASE EVENT DATE: 20210416
